FAERS Safety Report 11151080 (Version 1)
Quarter: 2015Q2

REPORT INFORMATION
  Report Type: Spontaneous
  Country: FR (occurrence: FR)
  Receive Date: 20150601
  Receipt Date: 20150601
  Transmission Date: 20150821
  Serious: Yes (Hospitalization)
  Sender: FDA-Public Use
  Company Number: FR-PFIZER INC-2015182898

PATIENT
  Age: 20 Year
  Sex: Female

DRUGS (9)
  1. MINIRIN [Concomitant]
     Active Substance: DESMOPRESSIN ACETATE
     Dosage: UNK
  2. LEVOTHYROX [Concomitant]
     Active Substance: LEVOTHYROXINE
     Dosage: UNK
  3. ORELOX [Suspect]
     Active Substance: CEFPODOXIME
     Indication: NASOPHARYNGITIS
     Dosage: UNK
     Route: 048
     Dates: start: 20141215, end: 20141220
  4. HYDROCORTISONE. [Concomitant]
     Active Substance: HYDROCORTISONE
     Dosage: UNK
  5. UTROGESTAN [Concomitant]
     Active Substance: PROGESTERONE
     Dosage: UNK
  6. RHINOMAXIL [Concomitant]
     Active Substance: BECLOMETHASONE DIPROPIONATE
     Dosage: UNK
     Dates: start: 20141215, end: 20141220
  7. EUPHON [Concomitant]
     Dosage: UNK
     Dates: start: 20141215, end: 20141220
  8. ESTREVA [Concomitant]
     Active Substance: ESTRADIOL
     Dosage: UNK
  9. DOLIPRANE [Concomitant]
     Active Substance: ACETAMINOPHEN
     Dosage: UNK
     Dates: start: 20141215, end: 20141220

REACTIONS (3)
  - Acute generalised exanthematous pustulosis [Recovering/Resolving]
  - Tachypnoea [Recovering/Resolving]
  - Tachycardia [Recovering/Resolving]

NARRATIVE: CASE EVENT DATE: 20141220
